FAERS Safety Report 7824732-8 (Version None)
Quarter: 2011Q4

REPORT INFORMATION
  Report Type: 
  Country: None (occurrence: None)
  Receive Date: 20111019
  Receipt Date: 20111014
  Transmission Date: 20120403
  Serious: Yes (Death)
  Sender: FDA-Public Use
  Company Number: PHHY2011CA91319

PATIENT
  Sex: Male

DRUGS (2)
  1. SANDOSTATIN LAR [Suspect]
     Dosage: 40 MG, EVERY FOUR WEEKS
     Route: 030
     Dates: start: 20110202
  2. SANDOSTATIN LAR [Suspect]
     Indication: SMALL INTESTINE CARCINOMA
     Dosage: 40 MG, EVERY FOUR WEEKS
     Route: 030
     Dates: start: 20081201

REACTIONS (1)
  - DEATH [None]
